FAERS Safety Report 12416661 (Version 2)
Quarter: 2016Q2

REPORT INFORMATION
  Report Type: Spontaneous
  Country: VE (occurrence: VE)
  Receive Date: 20160530
  Receipt Date: 20160608
  Transmission Date: 20160815
  Serious: Yes (Other)
  Sender: FDA-Public Use
  Company Number: VE-PFIZER INC-2016273971

PATIENT
  Age: 85 Year
  Sex: Female

DRUGS (1)
  1. DILANTIN [Suspect]
     Active Substance: PHENYTOIN
     Indication: ISCHAEMIC STROKE
     Dosage: 2 DF, DAILY
     Dates: start: 1994

REACTIONS (2)
  - Seizure [Unknown]
  - Product use issue [Unknown]
